FAERS Safety Report 4660537-7 (Version None)
Quarter: 2005Q2

REPORT INFORMATION
  Report Type: 
  Country: None (occurrence: None)
  Receive Date: 20050427
  Receipt Date: 20050224
  Transmission Date: 20051028
  Serious: No
  Sender: FDA-Public Use
  Company Number: 208113

PATIENT
  Age: 30 Year
  Sex: Female
  Weight: 99.8 kg

DRUGS (13)
  1. XOLAIR [Suspect]
     Indication: ASTHMA
     Dosage: 150 MG, Q4W, SUBCUTANEOUS
     Route: 058
     Dates: start: 20040526, end: 20050224
  2. ADVAIR DISKUS (SALMETEROL XINAFOATE, FLUTICASONE PROPIONATE) [Concomitant]
  3. FLONASE NASAL SPRAY (FLUTICASONE PROPIONATE) [Concomitant]
  4. ALBUTEROL INHALER (ALBUTEROL SULFATE, ALBUTEROL) [Concomitant]
  5. XOPENEX [Concomitant]
  6. NEXIUM [Concomitant]
  7. PROTONIX [Concomitant]
  8. SINGULAIR [Concomitant]
  9. PRILOSEC [Concomitant]
  10. BIAXIN XL [Concomitant]
  11. CALTRATE + D (CALCIUM CARBONATE, CHOLECALCIFEROL) [Concomitant]
  12. PREDNISONE [Concomitant]
  13. DEPO-MEDROL [Concomitant]

REACTIONS (1)
  - DRUG EXPOSURE DURING PREGNANCY [None]
